FAERS Safety Report 5826102-0 (Version None)
Quarter: 2008Q3

REPORT INFORMATION
  Report Type: 
  Country: None (occurrence: None)
  Receive Date: 20080729
  Receipt Date: 20080716
  Transmission Date: 20090109
  Serious: No
  Sender: FDA-Public Use
  Company Number: US-ELI_LILLY_AND_COMPANY-US200807003767

PATIENT
  Sex: Female

DRUGS (3)
  1. CYMBALTA [Suspect]
     Dates: start: 20070101
  2. COUMADIN [Concomitant]
     Indication: DEEP VEIN THROMBOSIS
     Dosage: 12 MG, OTHER
     Dates: start: 20080615
  3. COUMADIN [Concomitant]
     Dosage: 14 MG, OTHER
     Dates: start: 20080615

REACTIONS (3)
  - CONTUSION [None]
  - INTERNATIONAL NORMALISED RATIO INCREASED [None]
  - PROTHROMBIN TIME PROLONGED [None]
